FAERS Safety Report 24809458 (Version 1)
Quarter: 2025Q1

REPORT INFORMATION
  Report Type: Spontaneous
  Country: US (occurrence: None)
  Receive Date: 20250103
  Receipt Date: 20250103
  Transmission Date: 20250408
  Serious: Yes (Hospitalization)
  Sender: FDA-CTU
  Company Number: None

PATIENT
  Sex: Female

DRUGS (1)
  1. COSENTYX [Suspect]
     Active Substance: SECUKINUMAB
     Indication: Psoriatic arthropathy
     Dosage: 150MG/ML EVERY 4 WEEKS UNDER THE SKIN?
     Route: 042
     Dates: start: 202009

REACTIONS (2)
  - Skin infection [None]
  - Therapy interrupted [None]
